FAERS Safety Report 9705875 (Version 2)
Quarter: 2013Q4

REPORT INFORMATION
  Report Type: Spontaneous
  Country: US (occurrence: US)
  Receive Date: 20131122
  Receipt Date: 20131217
  Transmission Date: 20140711
  Serious: No
  Sender: FDA-Public Use
  Company Number: US-009507513-1311USA005056

PATIENT
  Sex: Male
  Weight: 108.84 kg

DRUGS (2)
  1. AZASITE [Suspect]
     Indication: MEIBOMIAN GLAND DYSFUNCTION
     Dosage: 2 GTT, QD
     Route: 047
     Dates: start: 2013, end: 20131112
  2. AZASITE [Suspect]
     Dosage: 2 GTT, BID
     Route: 047
     Dates: start: 20130912, end: 2013

REACTIONS (3)
  - Drug ineffective [Unknown]
  - Expired drug administered [Unknown]
  - Inappropriate schedule of drug administration [Unknown]
